FAERS Safety Report 17575115 (Version 2)
Quarter: 2020Q1

REPORT INFORMATION
  Report Type: Spontaneous
  Country: AU (occurrence: AU)
  Receive Date: 20200324
  Receipt Date: 20200330
  Transmission Date: 20200409
  Serious: Yes (Hospitalization, Other)
  Sender: FDA-Public Use
  Company Number: NVSC2020AU052103

PATIENT
  Sex: Male

DRUGS (19)
  1. CLOZARIL [Suspect]
     Active Substance: CLOZAPINE
     Dosage: UNK
     Route: 048
     Dates: start: 20200323
  2. AMISULPRIDE MYLAN [Suspect]
     Active Substance: AMISULPRIDE
     Indication: PRODUCT USED FOR UNKNOWN INDICATION
     Dosage: 200 MG, BID
     Route: 065
  3. ZUCLOPENTHIXOL DECANOATE [Suspect]
     Active Substance: ZUCLOPENTHIXOL DECANOATE
     Indication: PRODUCT USED FOR UNKNOWN INDICATION
     Dosage: UNK
     Route: 030
  4. ZUCLOPENTHIXOL DECANOATE [Suspect]
     Active Substance: ZUCLOPENTHIXOL DECANOATE
     Dosage: 400 MG, Q2MO (FORTNIGHTLY)
     Route: 030
     Dates: start: 2019
  5. NICOTINE. [Concomitant]
     Active Substance: NICOTINE
     Indication: PRODUCT USED FOR UNKNOWN INDICATION
     Dosage: 21 MG (PATCH)
     Route: 065
  6. ANTIHAEMOPHILIC FACTOR VIII LYOPHIZED [Concomitant]
     Indication: PRODUCT USED FOR UNKNOWN INDICATION
     Dosage: 3000 IU, QMO
     Route: 042
  7. OLANZAPINE. [Suspect]
     Active Substance: OLANZAPINE
     Dosage: 10 MG
     Route: 048
     Dates: start: 201911
  8. RISPERIDONE MYLAN [Suspect]
     Active Substance: RISPERIDONE
     Indication: PRODUCT USED FOR UNKNOWN INDICATION
     Dosage: UNK
     Route: 065
     Dates: start: 201911
  9. LORAZEPAM. [Concomitant]
     Active Substance: LORAZEPAM
     Indication: PRODUCT USED FOR UNKNOWN INDICATION
     Dosage: UNK
     Route: 048
  10. CLOZARIL [Suspect]
     Active Substance: CLOZAPINE
     Dosage: QD (DOSES RANGING BETWEEN 300-400 MG, OD)
     Route: 048
     Dates: start: 2009, end: 201903
  11. NICOTINE. [Concomitant]
     Active Substance: NICOTINE
     Dosage: 1 DF, PRN
     Route: 065
  12. OLANZAPINE. [Suspect]
     Active Substance: OLANZAPINE
     Indication: PRODUCT USED FOR UNKNOWN INDICATION
     Dosage: 405 MG, QMO
     Route: 030
     Dates: start: 201911
  13. NICOTINE. [Concomitant]
     Active Substance: NICOTINE
     Dosage: PRN
     Route: 065
  14. VALPROIC ACID. [Suspect]
     Active Substance: VALPROIC ACID
     Indication: PRODUCT USED FOR UNKNOWN INDICATION
     Dosage: UNK
     Route: 065
     Dates: start: 201911
  15. CLOZARIL [Suspect]
     Active Substance: CLOZAPINE
     Indication: SCHIZOPHRENIA
     Dosage: 200 MG
     Route: 048
     Dates: start: 20081211
  16. VALPROIC ACID. [Suspect]
     Active Substance: VALPROIC ACID
     Dosage: UNK
     Route: 065
     Dates: start: 202003
  17. OLANZAPINE MYLAN [Suspect]
     Active Substance: OLANZAPINE
     Indication: PRODUCT USED FOR UNKNOWN INDICATION
     Dosage: 20 MG, QD (NOCTE)
     Route: 048
     Dates: start: 201911
  18. AMISULPRIDE MYLAN [Suspect]
     Active Substance: AMISULPRIDE
     Dosage: UNK
     Route: 065
  19. FERROUS SULFATE. [Concomitant]
     Active Substance: FERROUS SULFATE
     Indication: PRODUCT USED FOR UNKNOWN INDICATION
     Dosage: 325 MG, BID
     Route: 065

REACTIONS (8)
  - Platelet count decreased [Unknown]
  - Antipsychotic drug level increased [Unknown]
  - Lymphocyte count decreased [Recovered/Resolved]
  - Drug ineffective [Unknown]
  - Schizophrenia [Unknown]
  - Intentional product misuse [Unknown]
  - Leukopenia [Recovered/Resolved]
  - Neutropenia [Recovered/Resolved]

NARRATIVE: CASE EVENT DATE: 2019
